FAERS Safety Report 25198730 (Version 1)
Quarter: 2025Q2

REPORT INFORMATION
  Report Type: Other
  Country: JP (occurrence: JP)
  Receive Date: 20250415
  Receipt Date: 20250415
  Transmission Date: 20250716
  Serious: Yes (Other)
  Sender: Kanchan Healthcare
  Company Number: JP-Kanchan Healthcare INC-2174920

PATIENT
  Age: 66 Year
  Sex: Male

DRUGS (10)
  1. DEXAMETHASONE [Suspect]
     Active Substance: DEXAMETHASONE
     Indication: Diffuse large B-cell lymphoma
  2. CYCLOPHOSPHAMIDE [Suspect]
     Active Substance: CYCLOPHOSPHAMIDE
  3. BENDAMUSTINE HYDROCHLORIDE [Suspect]
     Active Substance: BENDAMUSTINE HYDROCHLORIDE
  4. DOXORUBICIN HYDROCHLORIDE [Suspect]
     Active Substance: DOXORUBICIN HYDROCHLORIDE
  5. RITUXIMAB [Suspect]
     Active Substance: RITUXIMAB
  6. VINCRISTINE SULFATE [Suspect]
     Active Substance: VINCRISTINE SULFATE
  7. PREDNISONE [Suspect]
     Active Substance: PREDNISONE
  8. ETOPOSIDE [Suspect]
     Active Substance: ETOPOSIDE
  9. CISPLATIN [Suspect]
     Active Substance: CISPLATIN
  10. GEMCITABINE [Suspect]
     Active Substance: GEMCITABINE

REACTIONS (3)
  - Atrioventricular block complete [Unknown]
  - Left ventricular dysfunction [Unknown]
  - Ejection fraction decreased [Unknown]
